FAERS Safety Report 9817579 (Version 1)
Quarter: 2014Q1

REPORT INFORMATION
  Report Type: Spontaneous
  Country: FR (occurrence: FR)
  Receive Date: 20140115
  Receipt Date: 20140115
  Transmission Date: 20141002
  Serious: Yes (Hospitalization)
  Sender: FDA-Public Use
  Company Number: FR-009507513-1401FRA002547

PATIENT
  Age: 53 Year
  Sex: Male

DRUGS (9)
  1. ISENTRESS [Suspect]
     Indication: HIV INFECTION
     Dosage: 400 MG, BID
     Route: 048
     Dates: start: 20131214
  2. LAROXYL [Suspect]
     Dosage: 50 MG, QD
     Route: 048
     Dates: start: 20131214
  3. MALOCIDE [Suspect]
     Dosage: 75 MG, QD
     Route: 048
     Dates: start: 20131125
  4. CELSENTRI [Suspect]
     Dosage: 150 MG, BID
     Route: 048
     Dates: start: 20131214
  5. INTELENCE [Suspect]
     Dosage: 200 MG, BID
     Route: 048
     Dates: start: 20131214
  6. KALETRA [Suspect]
     Dosage: 100 MG, BID
     Route: 048
     Dates: start: 20131214
  7. WELLVONE [Suspect]
     Dosage: 750 MG, BID
     Route: 048
     Dates: start: 20131130
  8. DALACINE [Suspect]
     Dosage: 600 MG, TID
     Route: 048
     Dates: start: 20131130
  9. LEDERFOLINE [Suspect]
     Dosage: 100 MG, QW
     Route: 048
     Dates: start: 20131125

REACTIONS (1)
  - Status epilepticus [Recovering/Resolving]
